FAERS Safety Report 8110829-4 (Version None)
Quarter: 2012Q1

REPORT INFORMATION
  Report Type: 
  Country: None (occurrence: None)
  Receive Date: 20120201
  Receipt Date: 20120201
  Transmission Date: 20120608
  Serious: Yes (Hospitalization)
  Sender: FDA-Public Use
  Company Number: None

PATIENT
  Age: 70 Year
  Sex: Male
  Weight: 82.1 kg

DRUGS (3)
  1. ATORVASTATIN [Suspect]
     Indication: HYPERLIPIDAEMIA
     Dosage: 10 MG EVERY DAY PO
     Route: 048
     Dates: start: 20111114, end: 20120111
  2. ALLOPURINOL [Suspect]
     Indication: PROPHYLAXIS
     Dosage: 300 MG EVERY DAY PO
     Route: 048
     Dates: start: 20111114, end: 20120111
  3. ALLOPURINOL [Suspect]
     Indication: GOUT
     Dosage: 300 MG EVERY DAY PO
     Route: 048
     Dates: start: 20111114, end: 20120111

REACTIONS (4)
  - DRUG INTERACTION [None]
  - JAUNDICE [None]
  - CHOLESTASIS [None]
  - INFECTION [None]
